FAERS Safety Report 21951837 (Version 1)
Quarter: 2023Q1

REPORT INFORMATION
  Report Type: Spontaneous
  Country: US (occurrence: US)
  Receive Date: 20230203
  Receipt Date: 20230203
  Transmission Date: 20230417
  Serious: No
  Sender: FDA-Public Use
  Company Number: US-SA-SAC20230130000607

PATIENT

DRUGS (1)
  1. LARONIDASE [Suspect]
     Active Substance: LARONIDASE
     Indication: Mucopolysaccharidosis I
     Dosage: 6.4 (UNITS NOT PROVIDED), QW
     Route: 042
     Dates: start: 20050214

REACTIONS (1)
  - Tooth fracture [Unknown]

NARRATIVE: CASE EVENT DATE: 20221001
